FAERS Safety Report 7694071 (Version 2)
Quarter: 2020Q3

REPORT INFORMATION
  Report Type: Spontaneous
  Country: US (occurrence: None)
  Receive Date: 20101109
  Receipt Date: 20101117
  Transmission Date: 20201104
  Serious: Yes (Hospitalization, Other)
  Sender: FDA-Public Use
  Company Number: 2010AP002272

PATIENT
  Age: 80 Year
  Sex: Female

DRUGS (3)
  1. ALENDRONATE SODIUM. [Suspect]
     Active Substance: ALENDRONATE SODIUM
     Dosage: 70 MG;QW
  2. ASPIRIN. [Suspect]
     Active Substance: ASPIRIN
     Dosage: 81 MG;QD
  3. FERROUS SULFATE. [Suspect]
     Active Substance: FERROUS SULFATE
     Dosage: 300 MG;TID

REACTIONS (8)
  - Oesophageal injury [None]
  - Drug interaction [None]
  - Blood pressure systolic increased [None]
  - Oesophageal rupture [None]
  - Deep vein thrombosis [None]
  - Oesophageal haemorrhage [None]
  - Haemoglobin decreased [None]
  - Haematocrit decreased [None]
